FAERS Safety Report 6030569-5 (Version None)
Quarter: 2009Q1

REPORT INFORMATION
  Report Type: 
  Country: None (occurrence: None)
  Receive Date: 20090107
  Receipt Date: 20081229
  Transmission Date: 20090719
  Serious: Yes (Other)
  Sender: FDA-Public Use
  Company Number: JP-WATSON-2008-07557

PATIENT
  Age: 74 Year
  Sex: Male

DRUGS (3)
  1. CLARITHROMYCIN EXTENDED RELEASE [Suspect]
     Indication: GASTRIC INFECTION
     Dosage: 800 MG, UNKNOWN
     Route: 065
  2. AMOXICILLIN [Suspect]
     Indication: GASTRIC INFECTION
     Dosage: 1.5 G, UNKNOWN
     Route: 065
  3. LANSOPRAZOLE [Suspect]
     Indication: GASTRIC INFECTION
     Dosage: 60 MG, UNKNOWN
     Route: 065

REACTIONS (1)
  - ANAPLASTIC LARGE CELL LYMPHOMA T- AND NULL-CELL TYPES [None]
